FAERS Safety Report 5117527-X (Version None)
Quarter: 2006Q3

REPORT INFORMATION
  Report Type: 
  Country: None (occurrence: None)
  Receive Date: 20060926
  Receipt Date: 20060904
  Transmission Date: 20061208
  Serious: Yes (Congenital Anomaly)
  Sender: FDA-Public Use
  Company Number: IS200609002294

PATIENT

DRUGS (3)
  1. STRATTERA [Suspect]
     Dosage: TRANSPLACENTAL
     Route: 064
  2. SULFAMETHOXAZOLE [Concomitant]
  3. TRIMETHOPRIM [Concomitant]

REACTIONS (4)
  - CLEFT PALATE [None]
  - CONGENITAL ANOMALY [None]
  - DRUG EXPOSURE DURING PREGNANCY [None]
  - TWIN PREGNANCY [None]
